FAERS Safety Report 16651758 (Version 4)
Quarter: 2019Q3

REPORT INFORMATION
  Report Type: Spontaneous
  Country: JP (occurrence: JP)
  Receive Date: 20190731
  Receipt Date: 20190909
  Transmission Date: 20191004
  Serious: Yes (Hospitalization, Other)
  Sender: FDA-Public Use
  Company Number: JP-PFIZER INC-2019318023

PATIENT
  Age: 72 Year
  Sex: Male
  Weight: 51 kg

DRUGS (15)
  1. NEXIUM [Concomitant]
     Active Substance: ESOMEPRAZOLE MAGNESIUM
  2. LUPRAC [Concomitant]
     Active Substance: TORSEMIDE
     Dosage: 8 MG, 2X/DAY
  3. WARFARIN [Concomitant]
     Active Substance: WARFARIN
     Dosage: 2 MG, ALTERNATE DAY
  4. SAMSCA [Concomitant]
     Active Substance: TOLVAPTAN
     Dosage: 15 MG, 1X/DAY
  5. THYRADIN S [Concomitant]
     Active Substance: LEVOTHYROXINE SODIUM
     Dosage: 50 UG, UNK
  6. WARFARIN [Concomitant]
     Active Substance: WARFARIN
     Dosage: 2.5 MG, ALTERNATE DAY
  7. FLUITRAN [Concomitant]
     Active Substance: TRICHLORMETHIAZIDE
     Dosage: 1 MG, 1X/DAY
  8. GLUCONSAN K [Concomitant]
     Active Substance: POTASSIUM GLUCONATE
     Dosage: 3 G, UNK
  9. AMIODARONE [Concomitant]
     Active Substance: AMIODARONE
  10. LASIX [Concomitant]
     Active Substance: FUROSEMIDE
     Dosage: 80 MG, 2X/DAY
  11. CANALIA COMBINATION [Concomitant]
     Active Substance: CANAGLIFLOZIN\TENELIGLIPTIN
  12. VYNDAQEL [Suspect]
     Active Substance: TAFAMIDIS MEGLUMINE
     Indication: CARDIAC AMYLOIDOSIS
     Dosage: 80 MG, 1X/DAY
     Route: 048
     Dates: start: 20190619, end: 20190710
  13. DIART [Concomitant]
     Active Substance: AZOSEMIDE
     Dosage: 60 MG, 2X/DAY
  14. FEBURIC [Concomitant]
     Active Substance: FEBUXOSTAT
  15. GLUBES [Concomitant]
     Active Substance: MITIGLINIDE CALCIUM HYDRATE\VOGLIBOSE

REACTIONS (10)
  - C-reactive protein increased [Unknown]
  - Disease progression [Recovering/Resolving]
  - Cardiac failure chronic [Recovering/Resolving]
  - Low cardiac output syndrome [Unknown]
  - Hypotension [Unknown]
  - Lymphocyte percentage decreased [Unknown]
  - Monocyte percentage decreased [Unknown]
  - Red blood cell count increased [Unknown]
  - Dehydration [Unknown]
  - Neutrophil percentage increased [Unknown]

NARRATIVE: CASE EVENT DATE: 20190710
